FAERS Safety Report 5285475-0 (Version None)
Quarter: 2007Q1

REPORT INFORMATION
  Report Type: 
  Country: None (occurrence: None)
  Receive Date: 20070328
  Receipt Date: 20070315
  Transmission Date: 20070707
  Serious: Yes (Hospitalization)
  Sender: FDA-Public Use
  Company Number: 231388K07USA

PATIENT
  Age: 47 Year
  Sex: Male
  Weight: 140.6151 kg

DRUGS (2)
  1. REBIF [Suspect]
     Indication: MULTIPLE SCLEROSIS
     Dosage: 44 MCG, 3 IN 1 WEEKS, SUBCUTANEOUS
     Route: 058
     Dates: start: 20060929, end: 20070104
  2. REBIF [Suspect]
     Indication: MULTIPLE SCLEROSIS
     Dosage: 44 MCG, 3 IN 1 WEEKS, SUBCUTANEOUS
     Route: 058
     Dates: start: 20070314

REACTIONS (8)
  - CONDITION AGGRAVATED [None]
  - HAEMATEMESIS [None]
  - HIATUS HERNIA [None]
  - MULTIPLE SCLEROSIS [None]
  - NAUSEA [None]
  - POLYP [None]
  - ULCER [None]
  - VOMITING [None]
